FAERS Safety Report 8154899-6 (Version None)
Quarter: 2012Q1

REPORT INFORMATION
  Report Type: 
  Country: None (occurrence: None)
  Receive Date: 20120221
  Receipt Date: 20120216
  Transmission Date: 20120608
  Serious: Yes (Death, Other)
  Sender: FDA-Public Use
  Company Number: PHHY2011CA81190

PATIENT
  Sex: Female

DRUGS (4)
  1. SANDOSTATIN LAR [Suspect]
     Dosage: 60 MG EVERY 4 WEEKS
     Route: 030
     Dates: start: 20110929
  2. AFINITOR [Suspect]
     Indication: NEUROENDOCRINE TUMOUR
     Dosage: 10 MG,EVERY DAY
     Route: 048
     Dates: start: 20110929, end: 20111101
  3. SANDOSTATIN LAR [Suspect]
     Indication: NEUROENDOCRINE TUMOUR
     Dosage: 60 MG, QMO
     Route: 030
     Dates: start: 20060101
  4. SANDOSTATIN LAR [Suspect]
     Dosage: 40 MG, EVERY 4 WEEKS
     Route: 030
     Dates: start: 20110818

REACTIONS (7)
  - MUSCLE DISORDER [None]
  - DEATH [None]
  - ARTHRALGIA [None]
  - NEOPLASM MALIGNANT [None]
  - PAIN IN EXTREMITY [None]
  - INJECTION SITE PAIN [None]
  - TERMINAL STATE [None]
